FAERS Safety Report 20561029 (Version 2)
Quarter: 2022Q1

REPORT INFORMATION
  Report Type: Report from Study
  Country: NO (occurrence: NO)
  Receive Date: 20220307
  Receipt Date: 20220316
  Transmission Date: 20220423
  Serious: Yes (Other)
  Sender: FDA-Public Use
  Company Number: NO-BAYER-2022A032323

PATIENT
  Age: 44 Year
  Sex: Female

DRUGS (1)
  1. MIRENA [Suspect]
     Active Substance: LEVONORGESTREL
     Indication: Contraception
     Dosage: 20?G/DAY
     Route: 015
     Dates: start: 20220228, end: 20220228

REACTIONS (4)
  - Syncope [Recovered/Resolved]
  - Uterine spasm [None]
  - Complication of device insertion [None]
  - Device difficult to use [None]

NARRATIVE: CASE EVENT DATE: 20220228
